FAERS Safety Report 11938745 (Version 3)
Quarter: 2016Q1

REPORT INFORMATION
  Report Type: Spontaneous
  Country: AT (occurrence: AT)
  Receive Date: 20160122
  Receipt Date: 20160128
  Transmission Date: 20160526
  Serious: Yes (Other)
  Sender: FDA-Public Use
  Company Number: AT-009507513-1601AUT006576

PATIENT
  Age: 76 Year
  Sex: Female

DRUGS (4)
  1. SIMVASTATIN. [Concomitant]
     Active Substance: SIMVASTATIN
     Dosage: UNK
     Route: 048
     Dates: end: 201601
  2. THYROXIN [Concomitant]
     Active Substance: LEVOTHYROXINE
     Dosage: UNK
  3. KEYTRUDA [Suspect]
     Active Substance: PEMBROLIZUMAB
     Indication: NEOPLASM MALIGNANT
     Dosage: 2 MG/KG, ONCE, 1ST CYCLE
     Dates: start: 20151217, end: 2016
  4. BISOPROLOL [Concomitant]
     Active Substance: BISOPROLOL
     Dosage: UNK

REACTIONS (3)
  - Rhabdomyolysis [Not Recovered/Not Resolved]
  - Cardiac failure [Unknown]
  - Left ventricular failure [Unknown]

NARRATIVE: CASE EVENT DATE: 201601
